FAERS Safety Report 20175927 (Version 3)
Quarter: 2022Q2

REPORT INFORMATION
  Report Type: Spontaneous
  Country: US (occurrence: US)
  Receive Date: 20211213
  Receipt Date: 20220629
  Transmission Date: 20220721
  Serious: Yes (Other)
  Sender: FDA-Public Use
  Company Number: US-PFIZER INC-202101708071

PATIENT
  Age: 61 Year
  Sex: Female

DRUGS (1)
  1. IBRANCE [Suspect]
     Active Substance: PALBOCICLIB
     Indication: Breast cancer female
     Dosage: 125 MG
     Dates: start: 20210831

REACTIONS (9)
  - Surgery [Unknown]
  - Product dose omission issue [Unknown]
  - Urinary tract infection [Unknown]
  - Nausea [Unknown]
  - Nerve injury [Unknown]
  - Epistaxis [Unknown]
  - Dyspnoea [Unknown]
  - Dry skin [Unknown]
  - Fatigue [Unknown]
